FAERS Safety Report 4370595-5 (Version None)
Quarter: 2004Q2

REPORT INFORMATION
  Report Type: 
  Country: None (occurrence: None)
  Receive Date: 20040601
  Receipt Date: 20040423
  Transmission Date: 20050107
  Serious: No
  Sender: FDA-Public Use
  Company Number: USA040465382

PATIENT
  Age: 90 Year
  Sex: Male

DRUGS (8)
  1. ALIMTA [Suspect]
     Indication: PLEURAL MESOTHELIOMA MALIGNANT
     Dosage: 845 MG
     Dates: start: 20040415
  2. CISPLATIN [Concomitant]
  3. VITAMIN B-12 [Concomitant]
  4. FOLIC ACID [Concomitant]
  5. CORTICOSTERIOD NOS [Concomitant]
  6. PREVACID [Concomitant]
  7. LUPRON [Concomitant]
  8. .. [Concomitant]

REACTIONS (1)
  - DIZZINESS [None]
